FAERS Safety Report 8716132 (Version 3)
Quarter: 2013Q2

REPORT INFORMATION
  Report Type: Spontaneous
  Country: US (occurrence: US)
  Receive Date: 20120809
  Receipt Date: 20130411
  Transmission Date: 20140414
  Serious: Yes (Other)
  Sender: FDA-Public Use
  Company Number: US-RB-020875-11

PATIENT
  Age: 38 Year
  Sex: Female

DRUGS (5)
  1. SUBOXONE TABLET [Suspect]
     Route: 060
     Dates: start: 201011
  2. SUBOXONE TABLET [Suspect]
     Indication: DRUG DEPENDENCE
     Dosage: 3/4 OF 1 TABLET PER DAY
     Route: 065
  3. SUBUTEX [Suspect]
     Indication: DRUG DEPENDENCE
     Dosage: 3 TIMES A DAY
     Route: 065
     Dates: end: 20110823
  4. KLONOPIN [Suspect]
     Indication: ANXIETY
     Route: 065
  5. NICOTINE [Suspect]
     Indication: PRODUCT USED FOR UNKNOWN INDICATION
     Dosage: UNKNOWN DOSING DETAILS
     Route: 065

REACTIONS (4)
  - Exposure during pregnancy [Recovered/Resolved]
  - Premature delivery [Recovered/Resolved]
  - Foetal growth restriction [Recovered/Resolved]
  - Caesarean section [None]
